FAERS Safety Report 6212489-6 (Version None)
Quarter: 2009Q2

REPORT INFORMATION
  Report Type: 
  Country: None (occurrence: None)
  Receive Date: 20090603
  Receipt Date: 20090304
  Transmission Date: 20091009
  Serious: Yes (Other)
  Sender: FDA-Public Use
  Company Number: US-ELI_LILLY_AND_COMPANY-US200903001107

PATIENT
  Sex: Female

DRUGS (8)
  1. CYMBALTA [Suspect]
     Dosage: 30 MG, UNK
  2. CYMBALTA [Suspect]
     Dosage: 60 MG, 2/D
  3. PREVACID [Concomitant]
  4. CRESTOR [Concomitant]
  5. MORPHINE                           /00036301/ [Concomitant]
     Dosage: 20 MG, UNK
  6. METHADONE HCL [Concomitant]
     Dosage: 10 MG, UNK
  7. RESTORIL [Concomitant]
     Dosage: 15 MG, UNK
  8. ZANAFLEX [Concomitant]

REACTIONS (1)
  - TRACHEOSTOMY [None]
